FAERS Safety Report 4322768-5 (Version None)
Quarter: 2004Q1

REPORT INFORMATION
  Report Type: 
  Country: None (occurrence: None)
  Receive Date: 20040322
  Receipt Date: 20040126
  Transmission Date: 20041129
  Serious: No
  Sender: FDA-Public Use
  Company Number: US-JNJFOC-20040105799

PATIENT
  Age: 44 Year
  Sex: Female
  Weight: 50.3493 kg

DRUGS (2)
  1. ORTHO TRI-CYCLEN LO [Suspect]
     Indication: MENSTRUAL DISORDER
     Dosage: 1 DOSE, 1 IN 1 DAY, ORAL
     Route: 048
  2. MULTIVITAMIN [Concomitant]

REACTIONS (6)
  - ACNE [None]
  - BREAST TENDERNESS [None]
  - LIBIDO DECREASED [None]
  - NAUSEA [None]
  - VULVOVAGINAL DRYNESS [None]
  - WEIGHT INCREASED [None]
